FAERS Safety Report 13950854 (Version 1)
Quarter: 2017Q3

REPORT INFORMATION
  Report Type: Other
  Country: DK (occurrence: DK)
  Receive Date: 20170908
  Receipt Date: 20170908
  Transmission Date: 20171128
  Serious: Yes (Hospitalization)
  Sender: FDA-Public Use
  Company Number: DK-RARE DISEASE THERAPEUTICS, INC.-2025768

PATIENT
  Age: 19 Year
  Sex: Male
  Weight: 56 kg

DRUGS (3)
  1. REMICADE [Suspect]
     Active Substance: INFLIXIMAB
     Route: 042
     Dates: start: 20101126
  2. PURIXAN [Suspect]
     Active Substance: MERCAPTOPURINE
  3. REMSIMA [Suspect]
     Active Substance: INFLIXIMAB
     Dates: start: 20150817

REACTIONS (4)
  - Anastomotic leak [Recovered/Resolved]
  - Crohn^s disease [Recovered/Resolved]
  - Peritonitis [Recovered/Resolved]
  - Stomatitis [Recovered/Resolved]

NARRATIVE: CASE EVENT DATE: 20170714
